FAERS Safety Report 19951630 (Version 5)
Quarter: 2022Q1

REPORT INFORMATION
  Report Type: Spontaneous
  Country: CA (occurrence: CA)
  Receive Date: 20211013
  Receipt Date: 20220302
  Transmission Date: 20220423
  Serious: Yes (Hospitalization, Other)
  Sender: FDA-Public Use
  Company Number: CA-TAKEDA-2021TUS061090

PATIENT
  Age: 80 Year
  Sex: Male

DRUGS (7)
  1. PANTOPRAZOLE [Suspect]
     Active Substance: PANTOPRAZOLE
     Indication: Gastrooesophageal reflux disease
     Dosage: ORALLY ONCE DAILY
     Route: 048
     Dates: start: 20110722, end: 2019
  2. GEMCITABINE [Concomitant]
     Active Substance: GEMCITABINE
     Indication: Pancreatic carcinoma
     Dosage: (INITIATED ON FIVE 28-DAY CYCLES ADMINISTERED ON DAYS 1, 8, AND 15 OF EACH CYCLE)
     Dates: start: 2019
  3. PACLITAXEL [Concomitant]
     Active Substance: PACLITAXEL
     Indication: Pancreatic carcinoma
     Dosage: (INITIATED ON FIVE 28-DAY CYCLES ADMINISTERED ON DAYS 1, 8, AND 15 OF EACH CYCLE)
  4. PACLITAXEL [Concomitant]
     Active Substance: PACLITAXEL
     Dosage: (REDUCED, FOR THE FINAL THREE CYCLES)
  5. PACLITAXEL [Concomitant]
     Active Substance: PACLITAXEL
     Dosage: 150 MG/M2, CYCLIC
     Dates: start: 2019
  6. CIPROFLOXACIN [Concomitant]
     Active Substance: CIPROFLOXACIN
     Indication: Febrile neutropenia
     Dosage: (EVERY 12 HOURS)
     Route: 048
  7. AMOXICILLIN\CLAVULANIC ACID [Concomitant]
     Active Substance: AMOXICILLIN\CLAVULANIC ACID
     Indication: Febrile neutropenia
     Dosage: (EVERY 12 HOURS)
     Route: 048

REACTIONS (9)
  - Pancreatic failure [Recovering/Resolving]
  - Flatulence [Recovering/Resolving]
  - Diarrhoea [Recovered/Resolved]
  - Drug withdrawal syndrome [Recovering/Resolving]
  - Abdominal pain [Recovering/Resolving]
  - Unmasking of previously unidentified disease [Recovering/Resolving]
  - Diarrhoea [Recovered/Resolved]
  - Steatorrhoea [Recovered/Resolved]
  - Intentional dose omission [Unknown]

NARRATIVE: CASE EVENT DATE: 20190101
